FAERS Safety Report 12444416 (Version 1)
Quarter: 2016Q2

REPORT INFORMATION
  Report Type: Spontaneous
  Country: CN (occurrence: CN)
  Receive Date: 20160607
  Receipt Date: 20160607
  Transmission Date: 20160815
  Serious: Yes (Hospitalization, Other)
  Sender: FDA-Public Use
  Company Number: CN-GILEAD-2016-0216414

PATIENT
  Age: 51 Year
  Sex: Male

DRUGS (1)
  1. ADEFOVIR DIPIVOXIL. [Suspect]
     Active Substance: ADEFOVIR DIPIVOXIL
     Indication: CHRONIC HEPATITIS B
     Dosage: 10 MG, QD
     Route: 065
     Dates: start: 200706, end: 201412

REACTIONS (14)
  - Blood calcium decreased [Recovered/Resolved]
  - Beta-N-acetyl-D-glucosaminidase increased [Unknown]
  - Hypophosphataemia [Recovered/Resolved]
  - Rib fracture [Unknown]
  - Blood phosphorus decreased [Recovered/Resolved]
  - Beta 2 microglobulin urine increased [Recovered/Resolved]
  - Condition aggravated [Unknown]
  - Fanconi syndrome acquired [Recovered/Resolved]
  - Arthralgia [Recovered/Resolved]
  - Osteomalacia [Recovered/Resolved]
  - Osteoporosis [Recovered/Resolved]
  - Blood potassium decreased [Unknown]
  - Blood 25-hydroxycholecalciferol decreased [Unknown]
  - Alpha 1 microglobulin increased [Recovered/Resolved]

NARRATIVE: CASE EVENT DATE: 201402
